FAERS Safety Report 18234672 (Version 1)
Quarter: 2020Q3

REPORT INFORMATION
  Report Type: Spontaneous
  Country: CA (occurrence: CA)
  Receive Date: 20200904
  Receipt Date: 20200904
  Transmission Date: 20201103
  Serious: Yes (Other)
  Sender: FDA-Public Use
  Company Number: CA-ASTRAZENECA-2020SF09141

PATIENT
  Age: 25 Year
  Sex: Female

DRUGS (4)
  1. ZYPREXA [Suspect]
     Active Substance: OLANZAPINE
     Indication: PRODUCT USED FOR UNKNOWN INDICATION
     Route: 065
  2. ZIPRASIDONE HYDROCHLORIDE. [Suspect]
     Active Substance: ZIPRASIDONE HYDROCHLORIDE
     Indication: PRODUCT USED FOR UNKNOWN INDICATION
     Route: 065
  3. QUETIAPINE FUMARATE. [Suspect]
     Active Substance: QUETIAPINE FUMARATE
     Indication: PRODUCT USED FOR UNKNOWN INDICATION
     Route: 048
  4. ABILIFY [Suspect]
     Active Substance: ARIPIPRAZOLE
     Indication: PRODUCT USED FOR UNKNOWN INDICATION
     Route: 065

REACTIONS (18)
  - Orthostatic hypertension [Unknown]
  - Diabetes mellitus [Unknown]
  - Depression [Unknown]
  - Obesity [Unknown]
  - Posture abnormal [Unknown]
  - Sexual dysfunction [Unknown]
  - Insomnia [Unknown]
  - Akathisia [Unknown]
  - Dystonia [Unknown]
  - Parkinsonism [Unknown]
  - Sedation [Unknown]
  - Metabolic syndrome [Unknown]
  - Substance abuse [Unknown]
  - Suicidal ideation [Unknown]
  - Dyslipidaemia [Unknown]
  - Anxiety [Unknown]
  - Cognitive disorder [Unknown]
  - Impulse-control disorder [Unknown]
